FAERS Safety Report 9608171 (Version 2)
Quarter: 2013Q4

REPORT INFORMATION
  Report Type: Spontaneous
  Country: US (occurrence: US)
  Receive Date: 20131009
  Receipt Date: 20131023
  Transmission Date: 20140711
  Serious: No
  Sender: FDA-Public Use
  Company Number: US-PFIZER INC-2013288626

PATIENT
  Age: 62 Year
  Sex: Male
  Weight: 90 kg

DRUGS (3)
  1. PRISTIQ [Suspect]
     Indication: DEPRESSION
     Dosage: 50 MG, 2X/DAY
     Route: 048
  2. PRISTIQ [Suspect]
     Dosage: 50 MG, 1X/DAY
     Route: 048
  3. PROTONIX [Concomitant]
     Indication: GASTROOESOPHAGEAL REFLUX DISEASE
     Dosage: UNK

REACTIONS (1)
  - Drug ineffective [Unknown]
